FAERS Safety Report 6157861-8 (Version None)
Quarter: 2009Q2

REPORT INFORMATION
  Report Type: 
  Country: None (occurrence: None)
  Receive Date: 20090414
  Receipt Date: 20090401
  Transmission Date: 20091009
  Serious: Yes (Hospitalization)
  Sender: FDA-Public Use
  Company Number: CLOF-1000495

PATIENT
  Age: 49 Year
  Sex: Male

DRUGS (6)
  1. EVOLTRA (CLOFARABINE) SOLUTION FOR INFUSION [Suspect]
     Indication: ACUTE LYMPHOCYTIC LEUKAEMIA
     Dosage: 300 MG, INTRAVENOUS
     Route: 042
     Dates: start: 20090203, end: 20090207
  2. CYTARABINE [Concomitant]
  3. INSULIN (INSULIN) [Concomitant]
  4. LEVOFLOXACIN [Concomitant]
  5. OMEPRAZOL (OMEPRAZOLE MAGNESIUM) [Concomitant]
  6. LAMIVUDINE [Concomitant]

REACTIONS (1)
  - NEUROPATHY PERIPHERAL [None]
